FAERS Safety Report 4486880-2 (Version None)
Quarter: 2004Q4

REPORT INFORMATION
  Report Type: 
  Country: None (occurrence: None)
  Receive Date: 20041027
  Receipt Date: 20040804
  Transmission Date: 20050328
  Serious: Yes (Other)
  Sender: FDA-Public Use
  Company Number: PHBS2004CA10311

PATIENT
  Sex: Male

DRUGS (3)
  1. LOPRESSOR [Suspect]
     Dosage: 25 MG, BID
     Route: 048
     Dates: start: 20040601
  2. DILANTIN [Concomitant]
     Dosage: 300 MG/DAY
  3. TIMOLOL MALEATE [Concomitant]
     Indication: CATARACT

REACTIONS (3)
  - CONFUSIONAL STATE [None]
  - DELIRIUM [None]
  - HALLUCINATION [None]
